FAERS Safety Report 8049975 (Version 7)
Quarter: 2013Q1

REPORT INFORMATION
  Report Type: Spontaneous
  Country: US (occurrence: US)
  Receive Date: 20110722
  Receipt Date: 20130321
  Transmission Date: 20140127
  Serious: Yes (Hospitalization, Congenital Anomaly, Other)
  Sender: FDA-Public Use
  Company Number: US-PFIZER INC-2011159382

PATIENT
  Sex: Female
  Weight: 2.7 kg

DRUGS (10)
  1. ZOLOFT [Suspect]
     Indication: ANXIETY
     Dosage: 75 MG, UNK
     Route: 064
     Dates: start: 20051223
  2. ZOLOFT [Suspect]
     Dosage: 100 MG, UNK
     Route: 064
     Dates: start: 20060119
  3. ZOLOFT [Suspect]
     Dosage: 75 MG, UNK
     Route: 064
     Dates: start: 20060123
  4. ZOLOFT [Suspect]
     Dosage: 100 MG, UNK
     Route: 064
     Dates: start: 20060209
  5. ZOLOFT [Suspect]
     Dosage: UNK
     Route: 064
     Dates: start: 20060116, end: 20080828
  6. ALPRAZOLAM [Concomitant]
     Dosage: UNK
     Route: 064
  7. AMOXICILLIN [Concomitant]
     Dosage: UNK
     Route: 064
  8. METFORMIN [Concomitant]
     Dosage: UNK
     Route: 064
  9. PROMETRIUM [Concomitant]
     Dosage: UNK
     Route: 064
  10. PRENAFIRST [Concomitant]
     Dosage: UNK
     Route: 064

REACTIONS (7)
  - Maternal exposure timing unspecified [Unknown]
  - Meningomyelocele [Unknown]
  - Benign neoplasm of spinal cord [Unknown]
  - Congenital spinal cord anomaly [Unknown]
  - Haemangioma [Unknown]
  - Limb asymmetry [Unknown]
  - Congenital anomaly [Unknown]
